FAERS Safety Report 4383975-9 (Version None)
Quarter: 2004Q2

REPORT INFORMATION
  Report Type: 
  Country: None (occurrence: None)
  Receive Date: 20040623
  Receipt Date: 20040623
  Transmission Date: 20050107
  Serious: Yes (Hospitalization, Other)
  Sender: FDA-Public Use
  Company Number: None

PATIENT
  Sex: Male
  Weight: 88.905 kg

DRUGS (6)
  1. NORTRIPTYLINE HCL [Suspect]
     Indication: PARAESTHESIA
     Dosage: 50 MG PO HS
     Route: 048
     Dates: start: 20040114, end: 20040203
  2. REGLAN [Concomitant]
  3. METHOCARBAMOL [Concomitant]
  4. CITOLAPRAM [Concomitant]
  5. MORPHINE CR [Concomitant]
  6. PERCOCET [Concomitant]

REACTIONS (3)
  - CONFUSIONAL STATE [None]
  - FEELING ABNORMAL [None]
  - SOMNOLENCE [None]
